FAERS Safety Report 21752426 (Version 1)
Quarter: 2022Q4

REPORT INFORMATION
  Report Type: Report from Study
  Country: IT (occurrence: IT)
  Receive Date: 20221220
  Receipt Date: 20221220
  Transmission Date: 20230113
  Serious: Yes (Other)
  Sender: FDA-Public Use
  Company Number: IT-SUN PHARMACEUTICAL INDUSTRIES LTD-2022R1-369111

PATIENT

DRUGS (1)
  1. SODIUM NITROPRUSSIDE [Suspect]
     Active Substance: SODIUM NITROPRUSSIDE
     Indication: Cardiac failure acute
     Dosage: UNK
     Route: 042

REACTIONS (2)
  - Acute kidney injury [Unknown]
  - Therapy non-responder [Unknown]
